FAERS Safety Report 4927874-X (Version None)
Quarter: 2006Q1

REPORT INFORMATION
  Report Type: 
  Country: None (occurrence: None)
  Receive Date: 20060228
  Receipt Date: 20051111
  Transmission Date: 20060701
  Serious: Yes (Other)
  Sender: FDA-Public Use
  Company Number: ES-GLAXOSMITHKLINE-B0400451A

PATIENT
  Age: 52 Year
  Sex: Female

DRUGS (1)
  1. ZYNTABAC [Suspect]
     Indication: SMOKING CESSATION THERAPY
     Dosage: 1TAB PER DAY
     Route: 048

REACTIONS (9)
  - ASTHENIA [None]
  - CONDITION AGGRAVATED [None]
  - NAUSEA [None]
  - PRURIGO [None]
  - PRURITUS [None]
  - PSORIASIS [None]
  - SKIN EXFOLIATION [None]
  - SKIN LESION [None]
  - VOMITING [None]
